FAERS Safety Report 5258087-2 (Version None)
Quarter: 2007Q1

REPORT INFORMATION
  Report Type: 
  Country: None (occurrence: None)
  Receive Date: 20070307
  Receipt Date: 20070223
  Transmission Date: 20070707
  Serious: Yes (Hospitalization, Other)
  Sender: FDA-Public Use
  Company Number: US-SHR-US-2006-016480

PATIENT
  Age: 50 Year
  Sex: Female
  Weight: 48.98 kg

DRUGS (7)
  1. BETASERON [Suspect]
     Indication: RELAPSING-REMITTING MULTIPLE SCLEROSIS
     Dosage: 9.6 MIU, EVERY 2D
     Route: 058
     Dates: start: 20060601
  2. BETASERON [Suspect]
     Dosage: 8 MIU, EVERY 2D
     Route: 058
     Dates: start: 20050601, end: 20060601
  3. AMITRIPTYLINE HCL [Concomitant]
     Dosage: 150 MG, UNK
  4. EFFEXOR [Concomitant]
     Dosage: 37.5 MG, 1X A.M., 2X P.M.
  5. OXYBUTYNIN [Concomitant]
     Dosage: 5 MG, 3X/DAY
  6. OXYCODONE HCL [Concomitant]
     Indication: PAIN
  7. DOC-Q-LACE [Concomitant]
     Indication: BOWEL MOVEMENT IRREGULARITY
     Dosage: 100 MG, UNK

REACTIONS (13)
  - ANAEMIA [None]
  - DIPLOPIA [None]
  - DIZZINESS [None]
  - EAR INFECTION [None]
  - FALL [None]
  - FEELING HOT [None]
  - JAW FRACTURE [None]
  - LOSS OF CONSCIOUSNESS [None]
  - MUSCLE SPASMS [None]
  - PANCYTOPENIA [None]
  - TOOTH FRACTURE [None]
  - URINARY TRACT INFECTION [None]
  - VISION BLURRED [None]
